FAERS Safety Report 22303753 (Version 1)
Quarter: 2023Q2

REPORT INFORMATION
  Report Type: Spontaneous
  Country: CN (occurrence: CN)
  Receive Date: 20230510
  Receipt Date: 20230510
  Transmission Date: 20230722
  Serious: Yes (Hospitalization, Other)
  Sender: FDA-Public Use
  Company Number: CN-PFIZER INC-PV202300081699

PATIENT
  Age: 20 Month
  Sex: Female
  Weight: 10.4 kg

DRUGS (2)
  1. EPIRUBICIN [Suspect]
     Active Substance: EPIRUBICIN
     Indication: Acute myeloid leukaemia
     Dosage: 28 MG, 1X/DAY
     Route: 041
     Dates: start: 20230414, end: 20230416
  2. CYTARABINE [Suspect]
     Active Substance: CYTARABINE
     Indication: Acute myeloid leukaemia
     Dosage: 0.048 G, 2X/DAY
     Route: 041
     Dates: start: 20230414, end: 20230420

REACTIONS (1)
  - Myelosuppression [Recovering/Resolving]

NARRATIVE: CASE EVENT DATE: 20230420
